FAERS Safety Report 8810061 (Version 1)
Quarter: 2012Q4

REPORT INFORMATION
  Report Type: 
  Country: JP (occurrence: JP)
  Receive Date: 20120926
  Receipt Date: 20120926
  Transmission Date: 20130627
  Serious: Yes (Hospitalization)
  Sender: FDA-Public Use
  Company Number: JP-GLAXOSMITHKLINE-B0814492A

PATIENT
  Age: 45 Year
  Sex: Male

DRUGS (11)
  1. PAXIL [Suspect]
     Indication: DEPRESSIVE SYMPTOM
     Dosage: 10MG Twice per day
     Route: 048
     Dates: start: 20120417, end: 20120501
  2. PAXIL [Suspect]
     Indication: DEPRESSIVE SYMPTOM
     Dosage: 15MG Twice per day
     Route: 048
     Dates: start: 20120501, end: 20120515
  3. PAXIL [Suspect]
     Indication: DEPRESSIVE SYMPTOM
     Dosage: 20MG Twice per day
     Route: 048
     Dates: start: 20120515, end: 20120529
  4. PAXIL [Suspect]
     Indication: DEPRESSIVE SYMPTOM
     Dosage: 15MG Twice per day
     Route: 048
     Dates: start: 20120530, end: 20120624
  5. PAXIL [Suspect]
     Indication: DEPRESSIVE SYMPTOM
     Dosage: 10MG Twice per day
     Route: 048
     Dates: start: 20120625, end: 20120701
  6. PAXIL [Suspect]
     Indication: DEPRESSIVE SYMPTOM
     Dosage: 5MG Twice per day
     Route: 048
     Dates: start: 20120702, end: 20120704
  7. LITIOMAL [Concomitant]
     Indication: DEPRESSIVE SYMPTOM
     Dosage: 200MG Three times per day
     Route: 048
     Dates: start: 20120605
  8. ZYPREXA [Concomitant]
     Indication: HALLUCINATION
     Dosage: 5MG Per day
     Route: 048
     Dates: start: 20120605
  9. CYMBALTA [Concomitant]
     Route: 048
  10. SILECE [Concomitant]
     Route: 065
  11. MEILAX [Concomitant]
     Route: 048

REACTIONS (8)
  - Mania [Recovered/Resolved]
  - Drug effect incomplete [Unknown]
  - Persecutory delusion [Unknown]
  - Psychotic disorder [Unknown]
  - Euphoric mood [Unknown]
  - Logorrhoea [Unknown]
  - Psychomotor hyperactivity [Unknown]
  - Insomnia [Unknown]
